FAERS Safety Report 10255916 (Version 1)
Quarter: 2014Q2

REPORT INFORMATION
  Report Type: Spontaneous
  Country: US (occurrence: US)
  Receive Date: 20140624
  Receipt Date: 20140624
  Transmission Date: 20141212
  Serious: Yes (Hospitalization)
  Sender: FDA-Public Use
  Company Number: US-GLAXOSMITHKLINE-A1077643A

PATIENT
  Age: 67 Year
  Sex: Male

DRUGS (4)
  1. ADVAIR HFA [Suspect]
     Indication: CHRONIC OBSTRUCTIVE PULMONARY DISEASE
     Dosage: 1PUFF TWICE PER DAY
     Route: 055
     Dates: start: 2012
  2. VENTOLIN [Suspect]
     Indication: BRONCHOSPASM
     Dosage: 2PUFF THREE TIMES PER DAY
     Route: 055
     Dates: start: 2012
  3. BLOOD PRESSURE MEDICATION [Concomitant]
  4. DIABETES MEDICATION [Concomitant]

REACTIONS (3)
  - Peripheral swelling [Not Recovered/Not Resolved]
  - Chronic obstructive pulmonary disease [Not Recovered/Not Resolved]
  - Off label use [Unknown]
